FAERS Safety Report 20451149 (Version 1)
Quarter: 2022Q1

REPORT INFORMATION
  Report Type: Spontaneous
  Country: US (occurrence: US)
  Receive Date: 20220209
  Receipt Date: 20220209
  Transmission Date: 20220423
  Serious: Yes (Other)
  Sender: FDA-Public Use
  Company Number: US-GLAXOSMITHKLINE-US2021AMR231987

PATIENT
  Age: 21 Year
  Sex: Female
  Weight: 60.77 kg

DRUGS (15)
  1. WELLBUTRIN XL [Suspect]
     Active Substance: BUPROPION HYDROCHLORIDE
     Indication: Anxiety
     Route: 065
  2. WELLBUTRIN XL [Suspect]
     Active Substance: BUPROPION HYDROCHLORIDE
     Indication: Depression
  3. HYPROMELLOSES [Suspect]
     Active Substance: HYPROMELLOSES
     Indication: Dry eye
     Dosage: 1 DROP QID AS NEED FOR 14
     Route: 065
  4. LAMICTAL [Suspect]
     Active Substance: LAMOTRIGINE
     Indication: Anxiety
     Route: 065
     Dates: start: 20180410
  5. LAMICTAL [Suspect]
     Active Substance: LAMOTRIGINE
     Indication: Depression
     Route: 065
     Dates: start: 20180728
  6. FLUCONAZOLE [Suspect]
     Active Substance: FLUCONAZOLE
     Indication: Vulvovaginal candidiasis
     Dosage: 150 MG, 1 DF ONCE FOR 1 DOSE
     Route: 048
  7. LIDOCAINE [Suspect]
     Active Substance: LIDOCAINE
     Indication: Oropharyngeal pain
     Dosage: 10-15 ML SOL EVERY 4 HOURS AS NEED UPTO 3 DAYS
     Route: 048
  8. WELLBUTRIN [Suspect]
     Active Substance: BUPROPION HYDROCHLORIDE
     Indication: Product used for unknown indication
     Route: 048
     Dates: start: 20180728
  9. IBUPROFEN [Suspect]
     Active Substance: IBUPROFEN
     Indication: Pain
     Dosage: 2 DF, EVERY 6 HRS AS NEEDED FOR 7 DAYS
     Route: 065
  10. ATORVASTATIN [Suspect]
     Active Substance: ATORVASTATIN
     Indication: Product used for unknown indication
     Route: 065
  11. CLONAZEPAM [Suspect]
     Active Substance: CLONAZEPAM
     Indication: Product used for unknown indication
     Route: 065
  12. KLONOPIN [Suspect]
     Active Substance: CLONAZEPAM
     Indication: Product used for unknown indication
     Route: 048
     Dates: start: 20180410, end: 20180728
  13. LIPITOR [Suspect]
     Active Substance: ATORVASTATIN CALCIUM
     Indication: Product used for unknown indication
     Route: 048
     Dates: start: 20171221, end: 20180728
  14. MIRENA [Suspect]
     Active Substance: LEVONORGESTREL
     Indication: Product used for unknown indication
     Route: 015
     Dates: start: 20180728
  15. DIFLUCAN [Suspect]
     Active Substance: FLUCONAZOLE
     Indication: Fungal infection
     Route: 065

REACTIONS (67)
  - Pneumothorax [Unknown]
  - Haematemesis [Unknown]
  - Toxic epidermal necrolysis [Unknown]
  - Procedural complication [Unknown]
  - Blister [Unknown]
  - Pneumonia necrotising [Unknown]
  - Respiratory failure [Unknown]
  - Fungaemia [Unknown]
  - Renal failure [Unknown]
  - Organising pneumonia [Unknown]
  - Pulmonary haemorrhage [Unknown]
  - Cerebral haemorrhage [Unknown]
  - Epidermal necrosis [Unknown]
  - Noninfective encephalitis [Unknown]
  - Haemophagocytic lymphohistiocytosis [Unknown]
  - Pulmonary oedema [Unknown]
  - Acute respiratory distress syndrome [Unknown]
  - Haematoma [Unknown]
  - Lung assist device therapy [Unknown]
  - Dermatitis [Unknown]
  - Lymphoid tissue hyperplasia [Unknown]
  - Central nervous system lesion [Unknown]
  - Condition aggravated [Unknown]
  - Vulvovaginal erythema [Unknown]
  - Vulvovaginal swelling [Unknown]
  - Vaginal discharge [Unknown]
  - Oral disorder [Unknown]
  - Pharyngeal erythema [Unknown]
  - Skin warm [Unknown]
  - Ocular discomfort [Unknown]
  - Ocular hyperaemia [Unknown]
  - Vulvovaginal candidiasis [Unknown]
  - Aphthous ulcer [Unknown]
  - Gastric mucosa erythema [Unknown]
  - Tracheal inflammation [Unknown]
  - Jugular vein thrombosis [Unknown]
  - Haemoptysis [Unknown]
  - Viral rash [Unknown]
  - Fatigue [Unknown]
  - Debridement [Unknown]
  - Conjunctival hyperaemia [Unknown]
  - Dysphagia [Unknown]
  - Dysphagia [Unknown]
  - Pulmonary congestion [Unknown]
  - Conjunctivitis [Unknown]
  - Dry skin [Unknown]
  - Conjunctivitis viral [Unknown]
  - Rhinorrhoea [Unknown]
  - Sleep disorder [Unknown]
  - Lymphadenopathy [Unknown]
  - Oropharyngeal pain [Unknown]
  - Pharyngitis [Unknown]
  - Oral pain [Unknown]
  - Pain [Unknown]
  - Dysuria [Unknown]
  - Genital pain [Unknown]
  - Tachycardia [Unknown]
  - Stevens-Johnson syndrome [Unknown]
  - Pyrexia [Unknown]
  - Asthenia [Unknown]
  - Decreased appetite [Unknown]
  - Irritability [Unknown]
  - Dizziness [Unknown]
  - Myalgia [Unknown]
  - Blood glucose increased [Unknown]
  - Rash [Unknown]
  - Vulvovaginal pruritus [Unknown]
